FAERS Safety Report 8549793-2 (Version None)
Quarter: 2012Q3

REPORT INFORMATION
  Report Type: 
  Country: None (occurrence: None)
  Receive Date: 20120730
  Receipt Date: 20120720
  Transmission Date: 20120928
  Serious: Yes (Hospitalization, Disabling, Other)
  Sender: FDA-Public Use
  Company Number: US-009507513-1202USA03889

PATIENT

DRUGS (5)
  1. LIPITOR [Concomitant]
  2. MK-9278 [Concomitant]
     Dosage: 1 IU, QD
     Dates: start: 20020101, end: 20120101
  3. FOSAMAX [Suspect]
     Indication: BONE DENSITY DECREASED
     Dosage: 70 MG, UNK
     Route: 048
     Dates: start: 20010101
  4. VITAMIN D (UNSPECIFIED) [Concomitant]
     Dosage: 1 IU, QD
     Dates: start: 20020101, end: 20120101
  5. CHONDROITIN SULFATE SODIUM (+) DIMETHYL SULFONE (+) GLUCOSAMINE [Concomitant]
     Dosage: 1 IU, QD
     Dates: start: 20020101, end: 20120101

REACTIONS (27)
  - FEMUR FRACTURE [None]
  - ARTHROPATHY [None]
  - OSTEOPENIA [None]
  - STRESS FRACTURE [None]
  - GALLBLADDER DISORDER [None]
  - INTERVERTEBRAL DISC DEGENERATION [None]
  - ANGIOPATHY [None]
  - VENTRICULAR EXTRASYSTOLES [None]
  - LUNG DISORDER [None]
  - CORONARY ARTERY DISEASE [None]
  - ANKLE FRACTURE [None]
  - LOW TURNOVER OSTEOPATHY [None]
  - SPINAL DISORDER [None]
  - MUSCLE STRAIN [None]
  - UMBILICAL HERNIA [None]
  - BACK INJURY [None]
  - MUSCULAR WEAKNESS [None]
  - OSTEOPOROSIS [None]
  - KETONURIA [None]
  - CYST [None]
  - CEREBROVASCULAR ACCIDENT [None]
  - PAIN IN EXTREMITY [None]
  - SPINAL PAIN [None]
  - HYPERTENSION [None]
  - ELECTROCARDIOGRAM T WAVE ABNORMAL [None]
  - OSTEOARTHRITIS [None]
  - OEDEMA PERIPHERAL [None]
